FAERS Safety Report 13533387 (Version 9)
Quarter: 2018Q3

REPORT INFORMATION
  Report Type: Report from Study
  Country: US (occurrence: US)
  Receive Date: 20170510
  Receipt Date: 20180920
  Transmission Date: 20181010
  Serious: Yes (Hospitalization)
  Sender: FDA-Public Use
  Company Number: US-ACTELION-A-NJ2017-153585

PATIENT
  Age: 39 Year
  Sex: Female
  Weight: 80.73 kg

DRUGS (7)
  1. ADCIRCA [Concomitant]
     Active Substance: TADALAFIL
  2. REMODULIN [Concomitant]
     Active Substance: TREPROSTINIL
  3. OPSUMIT [Suspect]
     Active Substance: MACITENTAN
     Dosage: UNK
     Route: 048
  4. FLOLAN [Concomitant]
     Active Substance: EPOPROSTENOL SODIUM
  5. OPSUMIT [Suspect]
     Active Substance: MACITENTAN
     Indication: PULMONARY ARTERIAL HYPERTENSION
     Dosage: 10 MG, QD
     Route: 048
  6. XARELTO [Concomitant]
     Active Substance: RIVAROXABAN
  7. WARFARIN [Concomitant]
     Active Substance: WARFARIN

REACTIONS (15)
  - Addison^s disease [Unknown]
  - Catheter management [Unknown]
  - Blood pressure decreased [Unknown]
  - Syncope [Unknown]
  - Dehydration [Unknown]
  - Device related infection [Unknown]
  - Vomiting [Unknown]
  - Nausea [Unknown]
  - Gastroenteritis viral [Unknown]
  - Thrombosis [Unknown]
  - Device leakage [Unknown]
  - Diarrhoea [Not Recovered/Not Resolved]
  - Deep vein thrombosis [Unknown]
  - Cellulitis [Unknown]
  - Malaise [Unknown]

NARRATIVE: CASE EVENT DATE: 201804
